FAERS Safety Report 7156559-7 (Version None)
Quarter: 2010Q4

REPORT INFORMATION
  Report Type: 
  Country: None (occurrence: None)
  Receive Date: 20101214
  Receipt Date: 20091109
  Transmission Date: 20110411
  Serious: No
  Sender: FDA-Public Use
  Company Number: US-ASTRAZENECA-2009SE25769

PATIENT
  Age: 77 Year
  Sex: Female
  Weight: 85.7 kg

DRUGS (8)
  1. CRESTOR [Suspect]
     Indication: BLOOD CHOLESTEROL
     Route: 048
     Dates: start: 20090101
  2. HYDROCHLOROTHIAZIDE [Concomitant]
     Indication: BLOOD PRESSURE
  3. BYSTOLIC [Concomitant]
     Indication: BLOOD PRESSURE
  4. AMLODIPINE BESYLATE [Concomitant]
     Indication: BLOOD PRESSURE
  5. TEGRETOL [Concomitant]
  6. VITAMIN TAB [Concomitant]
  7. ASPIRIN [Concomitant]
  8. CO-Q-10 [Concomitant]

REACTIONS (3)
  - HEADACHE [None]
  - LIMB DISCOMFORT [None]
  - MELANOCYTIC NAEVUS [None]
